FAERS Safety Report 14316977 (Version 5)
Quarter: 2018Q1

REPORT INFORMATION
  Report Type: Report from Study
  Country: CA (occurrence: CA)
  Receive Date: 20171222
  Receipt Date: 20180207
  Transmission Date: 20180509
  Serious: Yes (Hospitalization, Other)
  Sender: FDA-Public Use
  Company Number: CA-TAKEDA-2017TUS026505

PATIENT
  Age: 66 Year
  Sex: Male

DRUGS (3)
  1. VEDOLIZUMAB [Suspect]
     Active Substance: VEDOLIZUMAB
     Indication: COLITIS ULCERATIVE
     Dosage: 300 MG, UNK
     Route: 042
     Dates: start: 20160811
  2. ASA [Concomitant]
     Active Substance: ASPIRIN
     Dosage: 30 MG, BID
  3. VEDOLIZUMAB [Suspect]
     Active Substance: VEDOLIZUMAB
     Dosage: 300 MG, Q4WEEKS
     Route: 042
     Dates: start: 20170209, end: 20180130

REACTIONS (3)
  - Colorectal cancer [Not Recovered/Not Resolved]
  - Malignant polyp [Unknown]
  - Off label use [Unknown]

NARRATIVE: CASE EVENT DATE: 20170209
